FAERS Safety Report 9643038 (Version 2)
Quarter: 2013Q4

REPORT INFORMATION
  Report Type: Spontaneous
  Country: DE (occurrence: DE)
  Receive Date: 20131024
  Receipt Date: 20131230
  Transmission Date: 20140711
  Serious: Yes (Other)
  Sender: FDA-Public Use
  Company Number: DE-MALLINCKRODT-T201304657

PATIENT
  Sex: Female
  Weight: 82 kg

DRUGS (7)
  1. EXALGO [Suspect]
     Indication: PAIN
     Dosage: 4 MG, 1 IN 1 DAY
     Route: 048
     Dates: start: 20130928, end: 20130930
  2. EXALGO [Suspect]
     Dosage: 4 MG, 2 IN 1 DAY
     Route: 048
     Dates: start: 20131001, end: 20131002
  3. LEVEMIR [Concomitant]
     Indication: TYPE 2 DIABETES MELLITUS
     Dosage: 14 UNITS, ADJUSTMENT ACCORDING BLOOD SUGAR
  4. LYRICA [Concomitant]
     Dosage: UNK
  5. DEKRISTOL [Concomitant]
     Dosage: UNK
  6. VALSARTAN [Concomitant]
     Dosage: UNK
  7. REQUIP [Concomitant]
     Dosage: UNK

REACTIONS (13)
  - Respiratory disorder [Recovering/Resolving]
  - Blood glucose increased [Recovering/Resolving]
  - Pancreatic enzymes increased [Recovering/Resolving]
  - Swelling face [Recovering/Resolving]
  - Skin fissures [Recovering/Resolving]
  - Hyperaesthesia [Recovering/Resolving]
  - Fluid retention [Recovering/Resolving]
  - Miosis [Recovering/Resolving]
  - Memory impairment [Recovering/Resolving]
  - Disturbance in attention [Recovering/Resolving]
  - Erythema [Recovering/Resolving]
  - Asthenia [Recovering/Resolving]
  - Drug ineffective [Recovering/Resolving]
